FAERS Safety Report 8487359-3 (Version None)
Quarter: 2012Q2

REPORT INFORMATION
  Report Type: 
  Country: None (occurrence: None)
  Receive Date: 20120628
  Receipt Date: 20120628
  Transmission Date: 20120825
  Serious: Yes (Other)
  Sender: FDA-Public Use
  Company Number: None

PATIENT
  Sex: Male
  Weight: 25.4014 kg

DRUGS (3)
  1. PREDNISONE DECREASING DOSES OVER A WEEK NOT KNOWN [Suspect]
     Indication: CONDITION AGGRAVATED
     Dosage: DECREASING AMOUNT FROM 30 MG ONCE A DAY PO
     Route: 048
     Dates: start: 20120612, end: 20120614
  2. PREDNISONE DECREASING DOSES OVER A WEEK NOT KNOWN [Suspect]
     Indication: ASTHMA
     Dosage: DECREASING AMOUNT FROM 30 MG ONCE A DAY PO
     Route: 048
     Dates: start: 20120612, end: 20120614
  3. ADVAIR 100/50MCG GLAXO WELLCOME [Suspect]
     Indication: ASTHMA
     Dosage: 100/50MCG 1 INH Q12HRS INHAL
     Route: 055
     Dates: start: 20120612, end: 20120614

REACTIONS (4)
  - VIITH NERVE PARALYSIS [None]
  - CONVULSION [None]
  - DROOLING [None]
  - TIC [None]
